FAERS Safety Report 19910355 (Version 1)
Quarter: 2021Q4

REPORT INFORMATION
  Report Type: Other
  Country: GR (occurrence: GR)
  Receive Date: 20211004
  Receipt Date: 20211004
  Transmission Date: 20220303
  Serious: Yes (Hospitalization, Other)
  Sender: FDA-Public Use
  Company Number: GR-UMEDICA-000136

PATIENT
  Age: 76 Year
  Sex: Female

DRUGS (1)
  1. OLMESARTAN [Suspect]
     Active Substance: OLMESARTAN
     Indication: Hypertension

REACTIONS (3)
  - Sprue-like enteropathy [Recovered/Resolved]
  - Colitis microscopic [Recovered/Resolved]
  - Chronic gastritis [Recovered/Resolved]
